FAERS Safety Report 18712444 (Version 1)
Quarter: 2021Q1

REPORT INFORMATION
  Report Type: Report from Study
  Country: IN (occurrence: IN)
  Receive Date: 20210107
  Receipt Date: 20210107
  Transmission Date: 20210419
  Serious: Yes (Hospitalization)
  Sender: FDA-Public Use
  Company Number: IN-INCYTE CORPORATION-2020IN013124

PATIENT

DRUGS (1)
  1. JAKAVI [Suspect]
     Active Substance: RUXOLITINIB
     Indication: MYELOFIBROSIS
     Dosage: 20 MG, BID
     Route: 048
     Dates: start: 20200715

REACTIONS (4)
  - Haemoglobin decreased [Unknown]
  - Asthenia [Not Recovered/Not Resolved]
  - Epistaxis [Unknown]
  - Pyrexia [Unknown]

NARRATIVE: CASE EVENT DATE: 20200731
